FAERS Safety Report 11916624 (Version 1)
Quarter: 2016Q1

REPORT INFORMATION
  Report Type: Spontaneous
  Country: GB (occurrence: None)
  Receive Date: 20160113
  Receipt Date: 20160113
  Transmission Date: 20160526
  Serious: Yes (Disabling)
  Sender: FDA-Public Use
  Company Number: None

PATIENT
  Age: 40 Year
  Sex: Male
  Weight: 100 kg

DRUGS (7)
  1. FLUOXATINE [Concomitant]
  2. IMIQUIMOD 3M [Suspect]
     Active Substance: IMIQUIMOD
     Indication: PAPILLOMA VIRAL INFECTION
     Dosage: SACHET
     Route: 054
  3. VITAMIN C [Concomitant]
     Active Substance: ASCORBIC ACID
  4. ZINC [Concomitant]
     Active Substance: ZINC\ZINC CHLORIDE
  5. MULTI VITAMINS [Concomitant]
  6. SOLAR [Concomitant]
  7. METHUSLALIFE SPRAY [Concomitant]

REACTIONS (6)
  - Fatigue [None]
  - Immune system disorder [None]
  - Alopecia totalis [None]
  - Influenza like illness [None]
  - Alopecia areata [None]
  - Off label use [None]

NARRATIVE: CASE EVENT DATE: 20090401
